FAERS Safety Report 5414102-4 (Version None)
Quarter: 2007Q3

REPORT INFORMATION
  Report Type: 
  Country: None (occurrence: None)
  Receive Date: 20070814
  Receipt Date: 20070803
  Transmission Date: 20080115
  Serious: Yes (Hospitalization)
  Sender: FDA-Public Use
  Company Number: US-PFIZER INC-2005114158

PATIENT
  Sex: Female
  Weight: 52.2 kg

DRUGS (11)
  1. SUTENT [Suspect]
     Indication: BREAST CANCER METASTATIC
     Route: 048
  2. IRON SULFATETHIAMIN COMPOUND TAB [Concomitant]
     Route: 048
     Dates: start: 20041226, end: 20050815
  3. HYDROCORTISONE ACETATE [Concomitant]
     Dates: start: 20050405, end: 20050815
  4. HYDROCHLOROTHIAZIDE [Concomitant]
  5. ATENOLOL [Concomitant]
  6. ATIVAN [Concomitant]
  7. VICODIN [Concomitant]
  8. TYLENOL EXTRA-STRENGTH [Concomitant]
  9. OCEAN NASAL SPRAY [Concomitant]
     Route: 045
  10. VITAMIN CAP [Concomitant]
  11. POTASSIUM CHLORIDE [Concomitant]

REACTIONS (1)
  - ASPERGILLOSIS [None]
